FAERS Safety Report 19263968 (Version 1)
Quarter: 2021Q2

REPORT INFORMATION
  Report Type: Spontaneous
  Country: US (occurrence: US)
  Receive Date: 20210515
  Receipt Date: 20210515
  Transmission Date: 20210717
  Serious: Yes (Hospitalization)
  Sender: FDA-Public Use
  Company Number: None

PATIENT
  Sex: Male

DRUGS (3)
  1. ABIRATERONE ACETATE. [Suspect]
     Active Substance: ABIRATERONE ACETATE
     Indication: PROSTATE CANCER
     Route: 048
     Dates: start: 20190226
  2. LORATADINE, PREDNISONE, AMOXICILLIN CLAVULANATE, AZELASTINE [Concomitant]
  3. CARVEDILOL, ATORVASTATIN, FLUTICASONE [Concomitant]

REACTIONS (1)
  - Nephrolithiasis [None]
